FAERS Safety Report 15136414 (Version 1)
Quarter: 2018Q3

REPORT INFORMATION
  Report Type: Spontaneous
  Country: NL (occurrence: NL)
  Receive Date: 20180712
  Receipt Date: 20180712
  Transmission Date: 20181010
  Serious: Yes (Death, Other)
  Sender: FDA-Public Use
  Company Number: PHHY2018NL015877

PATIENT
  Age: 12 Year
  Sex: Female

DRUGS (5)
  1. CARBOPLATIN. [Suspect]
     Active Substance: CARBOPLATIN
     Indication: NEPHROBLASTOMA
     Route: 065
  2. CYCLOPHOSPHAMIDE. [Suspect]
     Active Substance: CYCLOPHOSPHAMIDE
     Indication: NEPHROBLASTOMA
     Route: 065
  3. ACTINOMYCIN D [Suspect]
     Active Substance: DACTINOMYCIN
     Indication: NEPHROBLASTOMA
     Route: 065
  4. ETOPOSIDE. [Suspect]
     Active Substance: ETOPOSIDE
     Indication: NEPHROBLASTOMA
     Route: 065
  5. DOXORUBICIN [Suspect]
     Active Substance: DOXORUBICIN
     Indication: NEPHROBLASTOMA
     Route: 065

REACTIONS (4)
  - Product use in unapproved indication [Fatal]
  - Recurrent cancer [Fatal]
  - Malignant neoplasm progression [Fatal]
  - Nephroblastoma [Fatal]
